FAERS Safety Report 13592171 (Version 2)
Quarter: 2017Q2

REPORT INFORMATION
  Report Type: Spontaneous
  Country: US (occurrence: US)
  Receive Date: 20170530
  Receipt Date: 20170614
  Transmission Date: 20170830
  Serious: Yes (Hospitalization)
  Sender: FDA-Public Use
  Company Number: US-INTERPRAG-PM-OCA2017-00456

PATIENT

DRUGS (12)
  1. SPIRONOLACTONE. [Concomitant]
     Active Substance: SPIRONOLACTONE
  2. OCALIVA [Suspect]
     Active Substance: OBETICHOLIC ACID
     Indication: AUTOIMMUNE HEPATITIS
     Dosage: 5 MG, QD
     Route: 048
     Dates: start: 20170120
  3. FUROSEMIDE. [Concomitant]
     Active Substance: FUROSEMIDE
  4. CYCLOSPORIN [Concomitant]
     Active Substance: CYCLOSPORINE
  5. PANTOPRAZOLE [Concomitant]
     Active Substance: PANTOPRAZOLE
  6. PROPRANOLOL [Concomitant]
     Active Substance: PROPRANOLOL HYDROCHLORIDE
  7. POTASSIUM [Concomitant]
     Active Substance: POTASSIUM
  8. PREDNISONE. [Concomitant]
     Active Substance: PREDNISONE
  9. INTEGRA [Concomitant]
     Active Substance: DIETARY SUPPLEMENT
  10. URSODIOL. [Concomitant]
     Active Substance: URSODIOL
  11. AZASAN [Concomitant]
     Active Substance: AZATHIOPRINE
  12. XIFAXAN [Concomitant]
     Active Substance: RIFAXIMIN

REACTIONS (2)
  - Product use in unapproved indication [Unknown]
  - Liver transplant [Not Recovered/Not Resolved]

NARRATIVE: CASE EVENT DATE: 20170120
